FAERS Safety Report 20567784 (Version 1)
Quarter: 2022Q1

REPORT INFORMATION
  Report Type: Spontaneous
  Country: DE (occurrence: None)
  Receive Date: 20220308
  Receipt Date: 20220308
  Transmission Date: 20220423
  Serious: Yes (Hospitalization)
  Sender: FDA-Public Use
  Company Number: DE-SAMSUNG BIOEPIS-SB-2022-01803

PATIENT
  Age: 37 Year
  Sex: Female
  Weight: 81 kg

DRUGS (9)
  1. PACLITAXEL [Suspect]
     Active Substance: PACLITAXEL
     Indication: Breast cancer female
     Route: 042
     Dates: start: 20211123, end: 20220118
  2. PACLITAXEL [Suspect]
     Active Substance: PACLITAXEL
     Route: 042
     Dates: start: 20211123, end: 20220214
  3. CARBOPLATIN [Suspect]
     Active Substance: CARBOPLATIN
     Indication: Breast cancer female
     Dosage: 5 AUC,  Q 21 DAYS
     Route: 042
     Dates: start: 20211123, end: 20220118
  4. CARBOPLATIN [Suspect]
     Active Substance: CARBOPLATIN
     Dosage: 5 AUC,  Q 21 DAYS
     Route: 042
     Dates: start: 20211123, end: 20220214
  5. PERTUZUMAB [Suspect]
     Active Substance: PERTUZUMAB
     Indication: Breast cancer female
     Dosage: Q 21 DAYS
     Route: 042
     Dates: start: 20211123, end: 20220118
  6. PERTUZUMAB [Suspect]
     Active Substance: PERTUZUMAB
     Dosage: Q 21 DAYS
     Route: 042
     Dates: start: 20211123, end: 20220214
  7. TRASTUZUMAB [Suspect]
     Active Substance: TRASTUZUMAB
     Indication: Breast cancer female
     Dosage: Q 21 DAYS
     Route: 042
     Dates: start: 20211123, end: 20220118
  8. TRASTUZUMAB [Suspect]
     Active Substance: TRASTUZUMAB
     Dosage: Q21 DAYS
     Route: 042
     Dates: start: 20211123, end: 20220214
  9. POTASSIUM CHLORIDE [Concomitant]
     Active Substance: POTASSIUM CHLORIDE
     Indication: Hyperkalaemia
     Dosage: UNKNOWN
     Route: 065
     Dates: start: 20220124

REACTIONS (5)
  - Hepatotoxicity [Not Recovered/Not Resolved]
  - Cardiovascular disorder [Unknown]
  - Diarrhoea [Not Recovered/Not Resolved]
  - Vomiting [Not Recovered/Not Resolved]
  - Nausea [Not Recovered/Not Resolved]

NARRATIVE: CASE EVENT DATE: 20211123
